FAERS Safety Report 14963545 (Version 1)
Quarter: 2018Q2

REPORT INFORMATION
  Report Type: Spontaneous
  Country: ZA (occurrence: ZA)
  Receive Date: 20180601
  Receipt Date: 20180601
  Transmission Date: 20180711
  Serious: Yes (Death)
  Sender: FDA-Public Use
  Company Number: ZA-PFIZER INC-2018221777

PATIENT
  Age: 77 Year
  Sex: Male

DRUGS (5)
  1. BILOCOR [Suspect]
     Active Substance: BISOPROLOL FUMARATE
     Dosage: 5 MG, UNK
  2. ASPAVOR [Suspect]
     Active Substance: ATORVASTATIN
     Dosage: 20 MG, UNK
  3. PHARMAPRESS /00574902/ [Suspect]
     Active Substance: ENALAPRIL MALEATE
     Dosage: 20 MG, UNK
  4. BAYER ASPIRIN CARDIO [Suspect]
     Active Substance: ASPIRIN
     Dosage: 100 MG, UNK
  5. RIDAQ [Suspect]
     Active Substance: HYDROCHLOROTHIAZIDE
     Dosage: 12.5 MG, UNK

REACTIONS (1)
  - Death [Fatal]
